FAERS Safety Report 11279768 (Version 2)
Quarter: 2015Q3

REPORT INFORMATION
  Report Type: Spontaneous
  Country: US (occurrence: US)
  Receive Date: 20150717
  Receipt Date: 20150724
  Transmission Date: 20151125
  Serious: No
  Sender: FDA-Public Use
  Company Number: US-ASTRAZENECA-2012BM03970

PATIENT
  Sex: Male
  Weight: 115.6 kg

DRUGS (5)
  1. GLYBURIDE. [Suspect]
     Active Substance: GLYBURIDE
     Dosage: THREE TIMES A DAY
     Route: 065
  2. ONGLYZA [Suspect]
     Active Substance: SAXAGLIPTIN HYDROCHLORIDE
     Route: 048
  3. METFORMIN HCL [Suspect]
     Active Substance: METFORMIN HYDROCHLORIDE
     Dosage: 2000 MG, UNKNOWN
     Route: 065
  4. BYDUREON [Suspect]
     Active Substance: EXENATIDE
     Route: 058
  5. ONGLYZA [Suspect]
     Active Substance: SAXAGLIPTIN HYDROCHLORIDE
     Route: 048

REACTIONS (6)
  - Ear infection [Unknown]
  - Diabetes mellitus inadequate control [Unknown]
  - Nasopharyngitis [Unknown]
  - Psoriasis [Unknown]
  - Balance disorder [Unknown]
  - Weight increased [Unknown]
